FAERS Safety Report 8245326-9 (Version None)
Quarter: 2012Q1

REPORT INFORMATION
  Report Type: 
  Country: None (occurrence: None)
  Receive Date: 20120329
  Receipt Date: 20120320
  Transmission Date: 20120608
  Serious: Yes (Hospitalization)
  Sender: FDA-Public Use
  Company Number: US-BIOGENIDEC-2011BI048697

PATIENT
  Age: 63 Year
  Sex: Female

DRUGS (4)
  1. LEVOXYL [Concomitant]
  2. PAROXETINE [Concomitant]
  3. TRAZODONE HCL [Concomitant]
  4. AVONEX [Suspect]
     Indication: MULTIPLE SCLEROSIS
     Route: 030
     Dates: start: 20010201

REACTIONS (1)
  - PATELLA FRACTURE [None]
